FAERS Safety Report 7775711-0 (Version None)
Quarter: 2011Q3

REPORT INFORMATION
  Report Type: 
  Country: None (occurrence: None)
  Receive Date: 20110923
  Receipt Date: 20110809
  Transmission Date: 20111222
  Serious: Yes (Other)
  Sender: FDA-Public Use
  Company Number: GB-GLAXOSMITHKLINE-B0740667A

PATIENT
  Sex: Male

DRUGS (5)
  1. RAMIPRIL [Concomitant]
     Dosage: 10MG PER DAY
     Route: 048
  2. BENDROFLUMETHIAZIDE [Concomitant]
     Dosage: 2.5MG PER DAY
     Route: 048
  3. LEVOTHYROXINE SODIUM [Concomitant]
     Dosage: 125MCG PER DAY
     Route: 048
  4. SIMVASTATIN [Concomitant]
     Dosage: 40MG PER DAY
     Route: 048
  5. VOTRIENT [Suspect]
     Indication: RENAL CELL CARCINOMA
     Route: 065
     Dates: start: 20110713

REACTIONS (1)
  - HYPERTENSION [None]
